FAERS Safety Report 9263195 (Version 3)
Quarter: 2013Q2

REPORT INFORMATION
  Report Type: Spontaneous
  Country: JP (occurrence: JP)
  Receive Date: 20130430
  Receipt Date: 20130530
  Transmission Date: 20140414
  Serious: Yes (Hospitalization)
  Sender: FDA-Public Use
  Company Number: JP-ELI_LILLY_AND_COMPANY-JP201304005499

PATIENT
  Age: 78 Year
  Sex: Female

DRUGS (6)
  1. FORTEO [Suspect]
     Indication: OSTEOPOROSIS
     Dosage: UNK
     Route: 058
     Dates: start: 20130412, end: 20130420
  2. PREDONINE [Concomitant]
     Indication: RHEUMATOID ARTHRITIS
     Route: 048
  3. LYRICA [Concomitant]
     Indication: PAIN
     Route: 048
  4. MICARDIS [Concomitant]
     Indication: HYPERTENSION
     Route: 048
  5. MARZULENE S [Concomitant]
     Indication: GASTRITIS
     Route: 048
  6. BAYASPIRIN [Concomitant]
     Indication: MYOCARDIAL INFARCTION
     Route: 048

REACTIONS (4)
  - Melaena [Recovered/Resolved]
  - Abdominal pain [Unknown]
  - Ascites [Recovered/Resolved]
  - Swelling [Recovered/Resolved]
